FAERS Safety Report 7421260-9 (Version None)
Quarter: 2011Q2

REPORT INFORMATION
  Report Type: 
  Country: None (occurrence: None)
  Receive Date: 20110418
  Receipt Date: 20110417
  Transmission Date: 20111010
  Serious: No
  Sender: FDA-Public Use
  Company Number: US-TEVA-277038USA

PATIENT
  Sex: Female
  Weight: 81.72 kg

DRUGS (1)
  1. PLAN B ONE-STEP [Suspect]
     Indication: POST COITAL CONTRACEPTION
     Dosage: 1.5 MILLIGRAM;
     Route: 048
     Dates: start: 20110404, end: 20110404

REACTIONS (5)
  - MENSTRUATION IRREGULAR [None]
  - PREGNANCY AFTER POST COITAL CONTRACEPTION [None]
  - BREAST ENLARGEMENT [None]
  - DRUG INEFFECTIVE [None]
  - BACK PAIN [None]
